FAERS Safety Report 21258800 (Version 3)
Quarter: 2022Q3

REPORT INFORMATION
  Report Type: Spontaneous
  Country: ES (occurrence: ES)
  Receive Date: 20220826
  Receipt Date: 20220906
  Transmission Date: 20221027
  Serious: Yes (Death)
  Sender: FDA-Public Use
  Company Number: None

PATIENT
  Age: 44 Year
  Sex: Female

DRUGS (12)
  1. MEROPENEM [Suspect]
     Active Substance: MEROPENEM
     Dosage: 2 G, 4X/DAY
     Route: 042
     Dates: start: 20220329, end: 20220518
  2. MEROPENEM [Suspect]
     Active Substance: MEROPENEM
     Dosage: UNK
     Route: 065
  3. PANTOPRAZOLE [Suspect]
     Active Substance: PANTOPRAZOLE
     Dosage: UNK
     Route: 042
     Dates: start: 20220414
  4. CELLCEPT [Suspect]
     Active Substance: MYCOPHENOLATE MOFETIL
     Indication: Lung transplant
     Dosage: 500 MG, 2X/DAY, 50 TABLETS IN PACKET
     Route: 048
     Dates: start: 20220507, end: 20220516
  5. PROGRAF [Suspect]
     Active Substance: TACROLIMUS
     Indication: Lung transplant
     Dosage: 30 CAPSULES
     Route: 048
     Dates: start: 20220215
  6. SULFAMETHOXAZOLE\TRIMETHOPRIM [Suspect]
     Active Substance: SULFAMETHOXAZOLE\TRIMETHOPRIM
     Indication: Lung transplant
     Dosage: 1 DF, CYCLIC (FREQ:48 H)
     Route: 048
     Dates: start: 20220414, end: 20220516
  7. GANCICLOVIR [Suspect]
     Active Substance: GANCICLOVIR
     Indication: Cytomegalovirus infection reactivation
     Dosage: 450 MG, 1X/DAY
     Route: 042
     Dates: start: 20220318, end: 20220518
  8. FUROSEMIDE [Suspect]
     Active Substance: FUROSEMIDE
     Dosage: UNK
     Route: 042
     Dates: start: 20220420, end: 20220530
  9. MICAFUNGIN SODIUM [Suspect]
     Active Substance: MICAFUNGIN SODIUM
     Dosage: 150 MG, 1X/DAY
     Route: 042
     Dates: start: 20220215
  10. ERYTHROMYCIN LACTOBIONATE [Concomitant]
     Active Substance: ERYTHROMYCIN LACTOBIONATE
     Indication: Antibiotic therapy
     Dosage: FREQ:8 H
     Route: 042
     Dates: start: 20220505, end: 20220512
  11. AMBISOME [Concomitant]
     Active Substance: AMPHOTERICIN B
     Dosage: 200 MG, 1X/DAY
     Route: 042
     Dates: start: 20220414, end: 20220519
  12. DAPTOMYCIN [Concomitant]
     Active Substance: DAPTOMYCIN
     Dosage: 400 MG, 1X/DAY
     Route: 042
     Dates: start: 20220303, end: 20220519

REACTIONS (4)
  - Leukopenia [Fatal]
  - Agranulocytosis [Fatal]
  - Complications of transplanted lung [Fatal]
  - Off label use [Unknown]

NARRATIVE: CASE EVENT DATE: 20220101
